FAERS Safety Report 19189683 (Version 2)
Quarter: 2022Q2

REPORT INFORMATION
  Report Type: Spontaneous
  Country: CA (occurrence: CA)
  Receive Date: 20210428
  Receipt Date: 20220411
  Transmission Date: 20220721
  Serious: Yes (Hospitalization)
  Sender: FDA-Public Use
  Company Number: CA-PFIZER INC-2021432183

PATIENT
  Age: 65 Year
  Sex: Female

DRUGS (23)
  1. ZITHROMAX [Suspect]
     Active Substance: AZITHROMYCIN DIHYDRATE
     Dosage: UNK
  2. ALVESCO [Suspect]
     Active Substance: CICLESONIDE
     Dosage: UNK
     Route: 055
  3. ALVESCO [Suspect]
     Active Substance: CICLESONIDE
     Dosage: 200 UG, 1X/DAY
     Route: 055
  4. ALVESCO [Suspect]
     Active Substance: CICLESONIDE
     Dosage: 200 UG, 2X/DAY
     Route: 055
  5. ALVESCO [Suspect]
     Active Substance: CICLESONIDE
     Dosage: UNK
     Route: 055
  6. ALVESCO [Suspect]
     Active Substance: CICLESONIDE
     Dosage: 200 UG, 1 EVERY .5 DAYS
     Route: 055
  7. ATROVENT [Suspect]
     Active Substance: IPRATROPIUM BROMIDE
     Dosage: 20 UG, 1X/DAY
  8. ATROVENT [Suspect]
     Active Substance: IPRATROPIUM BROMIDE
     Dosage: 40 UG, 1X/DAY
  9. NUCALA [Suspect]
     Active Substance: MEPOLIZUMAB
     Indication: Asthma
     Dosage: 100 MG, 1X/DAY
  10. NUCALA [Suspect]
     Active Substance: MEPOLIZUMAB
     Dosage: 100 MG, 1X/DAY
  11. RUPATADINE [Suspect]
     Active Substance: RUPATADINE
     Indication: Multiple allergies
     Dosage: UNK
  12. ALBUTEROL [Suspect]
     Active Substance: ALBUTEROL
     Dosage: UNK
     Route: 055
  13. ALBUTEROL [Suspect]
     Active Substance: ALBUTEROL
     Dosage: UNK
  14. ALBUTEROL [Suspect]
     Active Substance: ALBUTEROL
     Dosage: 100 UG, 1X/DAY
     Route: 055
  15. ALBUTEROL [Suspect]
     Active Substance: ALBUTEROL
     Dosage: 100 UG, 1X/DAY
  16. SYMBICORT [Suspect]
     Active Substance: BUDESONIDE\FORMOTEROL FUMARATE DIHYDRATE
     Dosage: UNK
     Route: 055
  17. SYMBICORT [Suspect]
     Active Substance: BUDESONIDE\FORMOTEROL FUMARATE DIHYDRATE
     Dosage: 2 DF, 2X/DAY
     Route: 055
  18. SYMBICORT [Suspect]
     Active Substance: BUDESONIDE\FORMOTEROL FUMARATE DIHYDRATE
     Dosage: UNK
     Route: 055
  19. SYMBICORT [Suspect]
     Active Substance: BUDESONIDE\FORMOTEROL FUMARATE DIHYDRATE
     Dosage: 4 DF, 1X/DAY
     Route: 055
  20. ALVESCO [Suspect]
     Active Substance: CICLESONIDE
     Dosage: 200 UG, 1X/DAY
     Route: 055
  21. ALVESCO [Suspect]
     Active Substance: CICLESONIDE
     Dosage: 400 UG, 1X/DAY
     Route: 055
  22. FLUTICASONE PROPIONATE\SALMETEROL XINAFOATE [Suspect]
     Active Substance: FLUTICASONE PROPIONATE\SALMETEROL XINAFOATE
     Dosage: UNK
  23. RUPATADINE FUMARATE [Suspect]
     Active Substance: RUPATADINE FUMARATE
     Dosage: UNK

REACTIONS (4)
  - Asthma [Unknown]
  - Dyspnoea [Unknown]
  - Therapeutic product effect incomplete [Unknown]
  - Wheezing [Unknown]
